FAERS Safety Report 7920330 (Version 3)
Quarter: 2013Q1

REPORT INFORMATION
  Report Type: Spontaneous
  Country: US (occurrence: None)
  Receive Date: 20110407
  Receipt Date: 20121009
  Transmission Date: 20140127
  Serious: Yes (Other)
  Sender: FDA-Public Use
  Company Number: 2011MA002962

PATIENT
  Sex: Female

DRUGS (25)
  1. METOCLOPRAMIDE [Suspect]
     Dates: start: 200501, end: 20100304
  2. NAPROXEN [Concomitant]
  3. ATROVENT [Concomitant]
  4. RANITIDINE [Concomitant]
  5. SIMVASTATIN [Concomitant]
  6. CARBIDOPA/LEVODOPA [Concomitant]
  7. NIFEDIAC [Concomitant]
  8. PLAVIX [Concomitant]
  9. GABAPENTIN [Concomitant]
  10. FLUTICASONE [Concomitant]
  11. CLEMASTINE [Concomitant]
  12. FLOVENT [Concomitant]
  13. PROMETHAZINE [Concomitant]
  14. VENTOLIN [Concomitant]
  15. GEMFIBROZIL [Concomitant]
  16. ASPIRINE [Concomitant]
  17. CYCLOBENZAPRINE [Concomitant]
  18. MORPHINE [Concomitant]
  19. OXYCODONE [Concomitant]
  20. METHADONE [Concomitant]
  21. CLARITHROMYCIN [Concomitant]
  22. HYDROXYZINE [Concomitant]
  23. DIAZEPAM [Concomitant]
  24. BACLOFEN [Concomitant]
  25. CLONAZEPAM [Concomitant]

REACTIONS (9)
  - Tardive dyskinesia [None]
  - Dystonia [None]
  - Akathisia [None]
  - Extrapyramidal disorder [None]
  - Tremor [None]
  - Injury [None]
  - Dyskinesia [None]
  - Emotional disorder [None]
  - Economic problem [None]
